FAERS Safety Report 15075391 (Version 1)
Quarter: 2018Q2

REPORT INFORMATION
  Report Type: Report from Study
  Country: US (occurrence: US)
  Receive Date: 20180627
  Receipt Date: 20180627
  Transmission Date: 20180711
  Serious: No
  Sender: FDA-Public Use
  Company Number: US-SAOL THERAPEUTICS-2018SAO00454

PATIENT
  Age: 64 Year
  Sex: Female

DRUGS (12)
  1. COMPOUNDED BACLOFEN [Suspect]
     Active Substance: BACLOFEN
     Dosage: 55.06 ?G, \DAY
     Route: 037
     Dates: start: 20160204
  2. DILAUDID [Suspect]
     Active Substance: HYDROMORPHONE HYDROCHLORIDE
     Dosage: 0.858 MG, \DAY
     Route: 037
     Dates: start: 20170428
  3. BUPIVACAINE. [Suspect]
     Active Substance: BUPIVACAINE
     Dosage: 12.873 MG, \DAY
     Route: 037
  4. BUPIVACAINE. [Suspect]
     Active Substance: BUPIVACAINE
     Dosage: 8.259 MG, \DAY
     Route: 037
     Dates: start: 20160204
  5. BUPIVACAINE. [Suspect]
     Active Substance: BUPIVACAINE
     Dosage: 15.975 MG, \DAY, MAX DOSE
     Route: 037
     Dates: start: 20160204
  6. BUPIVACAINE. [Suspect]
     Active Substance: BUPIVACAINE
     Dosage: 22.192 MG, \DAY, MAX DOSE
     Route: 037
     Dates: start: 20170428, end: 20170428
  7. DILAUDID [Suspect]
     Active Substance: HYDROMORPHONE HYDROCHLORIDE
     Dosage: 0.550 MG, \DAY
     Route: 037
     Dates: start: 20160204
  8. DILAUDID [Suspect]
     Active Substance: HYDROMORPHONE HYDROCHLORIDE
     Dosage: 1.479 MG, \DAY, MAX DOSE
     Route: 037
     Dates: start: 20170428
  9. COMPOUNDED BACLOFEN [Suspect]
     Active Substance: BACLOFEN
     Dosage: 106.50 ?G, \DAY, MAX DOSE
     Route: 037
     Dates: start: 20160204
  10. COMPOUNDED BACLOFEN [Suspect]
     Active Substance: BACLOFEN
     Dosage: 85.82 ?G, \DAY
     Route: 037
     Dates: start: 20170428
  11. COMPOUNDED BACLOFEN [Suspect]
     Active Substance: BACLOFEN
     Dosage: 147.95 ?G, \DAY MAX DOSE
     Route: 037
     Dates: start: 20170428
  12. DILAUDID [Suspect]
     Active Substance: HYDROMORPHONE HYDROCHLORIDE
     Dosage: 1.065 MG, \DAY, MAX DOSE
     Route: 037
     Dates: start: 20160204

REACTIONS (3)
  - Dizziness [Unknown]
  - Implant site pain [Unknown]
  - Implant site extravasation [Unknown]

NARRATIVE: CASE EVENT DATE: 20160204
